FAERS Safety Report 21342158 (Version 1)
Quarter: 2022Q3

REPORT INFORMATION
  Report Type: Other
  Country: DE (occurrence: None)
  Receive Date: 20220916
  Receipt Date: 20220916
  Transmission Date: 20221027
  Serious: Yes (Other)
  Sender: FDA-Public Use
  Company Number: DE-ROCHE-3177420

PATIENT
  Age: 38 Year
  Sex: Female
  Weight: 114 kg

DRUGS (18)
  1. OCRELIZUMAB [Suspect]
     Active Substance: OCRELIZUMAB
     Indication: Relapsing multiple sclerosis
     Route: 042
     Dates: start: 20190807, end: 20190821
  2. OCRELIZUMAB [Suspect]
     Active Substance: OCRELIZUMAB
     Route: 042
     Dates: start: 20200206
  3. PANTOZOL [Concomitant]
     Active Substance: PANTOPRAZOLE SODIUM
     Indication: Premedication
     Route: 048
     Dates: start: 20190807
  4. LYRICA [Concomitant]
     Active Substance: PREGABALIN
     Indication: Neuralgia
     Route: 048
     Dates: start: 201901
  5. CALCIUM\CHOLECALCIFEROL [Concomitant]
     Active Substance: CALCIUM\CHOLECALCIFEROL
     Indication: Vitamin D deficiency
     Route: 048
  6. DIMETHINDENE MALEATE [Concomitant]
     Active Substance: DIMETHINDENE MALEATE
     Indication: Premedication
     Route: 042
     Dates: start: 20190807
  7. VICTOZA [Concomitant]
     Active Substance: LIRAGLUTIDE
     Indication: Diabetes mellitus
     Route: 048
  8. ENALAPRIL [Concomitant]
     Active Substance: ENALAPRIL
     Indication: Hypertension
     Route: 048
  9. MODERNA COVID-19 VACCINE [Concomitant]
     Active Substance: ELASOMERAN
     Indication: COVID-19 immunisation
     Route: 030
     Dates: start: 20211208, end: 20211208
  10. METHYLPREDNISOLONE [Concomitant]
     Active Substance: METHYLPREDNISOLONE
     Indication: Multiple sclerosis relapse
     Route: 042
     Dates: start: 20210202, end: 20210206
  11. PREDNISOLONE [Concomitant]
     Active Substance: PREDNISOLONE
     Indication: Premedication
     Route: 042
     Dates: start: 20190807
  12. FERROUS GLYCINE SULFATE [Concomitant]
     Active Substance: FERROUS GLYCINE SULFATE
     Indication: Iron deficiency
     Route: 048
  13. LEVOTHYROXINE SODIUM [Concomitant]
     Active Substance: LEVOTHYROXINE SODIUM
     Indication: Hypothyroidism
     Route: 048
  14. XIGDUO XR [Concomitant]
     Active Substance: DAPAGLIFLOZIN PROPANEDIOL\METFORMIN HYDROCHLORIDE
     Indication: Diabetes mellitus
     Route: 048
  15. ENOXAPARIN SODIUM [Concomitant]
     Active Substance: ENOXAPARIN SODIUM
     Indication: Thrombosis prophylaxis
     Route: 058
     Dates: start: 20210202, end: 20210206
  16. ACETAMINOPHEN [Concomitant]
     Active Substance: ACETAMINOPHEN
     Indication: Premedication
     Route: 048
     Dates: start: 20190807
  17. PANTOPRAZOLE SODIUM [Concomitant]
     Active Substance: PANTOPRAZOLE SODIUM
     Route: 048
     Dates: start: 20210202, end: 20210206
  18. ALLOPURINOL [Concomitant]
     Active Substance: ALLOPURINOL
     Indication: Gout
     Route: 048

REACTIONS (1)
  - Anal abscess [Recovered/Resolved]

NARRATIVE: CASE EVENT DATE: 20220519
